FAERS Safety Report 5053450-7 (Version None)
Quarter: 2006Q3

REPORT INFORMATION
  Report Type: 
  Country: None (occurrence: None)
  Receive Date: 20060718
  Receipt Date: 20060619
  Transmission Date: 20061208
  Serious: Yes (Hospitalization, Other)
  Sender: FDA-Public Use
  Company Number: US-AMGEN-STX183518

PATIENT
  Sex: Female
  Weight: 129.8 kg

DRUGS (9)
  1. ENBREL [Suspect]
     Indication: RHEUMATOID ARTHRITIS
     Route: 058
     Dates: start: 19980101
  2. METHOTREXATE [Concomitant]
     Route: 065
     Dates: start: 19970101
  3. PLAVIX [Concomitant]
  4. FOLIC ACID [Concomitant]
  5. HUMABID [Concomitant]
  6. POTASSIUM CHLORIDE [Concomitant]
  7. COZAAR [Concomitant]
  8. ASPIRIN [Concomitant]
  9. DETROL [Concomitant]

REACTIONS (2)
  - MYOCARDIAL INFARCTION [None]
  - NEPHROLITHIASIS [None]
